FAERS Safety Report 15331213 (Version 3)
Quarter: 2018Q3

REPORT INFORMATION
  Report Type: Spontaneous
  Country: HK (occurrence: HK)
  Receive Date: 20180829
  Receipt Date: 20180914
  Transmission Date: 20181010
  Serious: Yes (Hospitalization, Other)
  Sender: FDA-Public Use
  Company Number: HK-BAYER-2018-085398

PATIENT

DRUGS (4)
  1. NEXAVAR [Suspect]
     Active Substance: SORAFENIB
     Indication: HEPATOCELLULAR CARCINOMA
     Dosage: UNK
     Dates: start: 201511
  2. STIVARGA [Suspect]
     Active Substance: REGORAFENIB
     Dosage: 120 MG, DAILY
  3. STIVARGA [Suspect]
     Active Substance: REGORAFENIB
     Dosage: 80 MG, DAILY
  4. STIVARGA [Suspect]
     Active Substance: REGORAFENIB
     Dosage: 80 MG, DAILY

REACTIONS (15)
  - Palmar-plantar erythrodysaesthesia syndrome [None]
  - Alopecia [None]
  - Vomiting [None]
  - Stomatitis [None]
  - Oedema [None]
  - Diarrhoea [None]
  - Hepatocellular carcinoma [None]
  - Decreased appetite [None]
  - Malaise [None]
  - Nausea [None]
  - Rash [None]
  - Pain [None]
  - Fatigue [None]
  - Drug-induced liver injury [None]
  - Hypertension [None]
